FAERS Safety Report 4644012-1 (Version None)
Quarter: 2005Q2

REPORT INFORMATION
  Report Type: 
  Country: None (occurrence: None)
  Receive Date: 20050418
  Receipt Date: 20050408
  Transmission Date: 20051028
  Serious: Yes (Other)
  Sender: FDA-Public Use
  Company Number: 200510091BCA

PATIENT
  Age: 27 Year
  Sex: Male

DRUGS (4)
  1. GAMUNEX [Suspect]
     Indication: GUILLAIN-BARRE SYNDROME
     Dosage: 20 G, TOTAL DAILY, INTRAVENOUS
     Route: 042
     Dates: start: 20050201
  2. GAMUNEX [Suspect]
     Dosage: 10 G, TOTAL DAILY, INTRAVENOUS
     Route: 042
     Dates: start: 20050201
  3. GAMUNEX [Suspect]
     Dosage: 10 G, TOTAL DAILY, INTRAVENOUS
     Route: 042
     Dates: start: 20050202
  4. GAMUNEX [Suspect]
     Dosage: 20 G, TOTAL DAILY, INTRAVENOUS
     Route: 042
     Dates: start: 20050203

REACTIONS (4)
  - AUTOANTIBODY POSITIVE [None]
  - BLOOD LACTATE DEHYDROGENASE INCREASED [None]
  - HAEMOLYSIS [None]
  - HAEMOLYTIC ANAEMIA [None]
